FAERS Safety Report 16012260 (Version 1)
Quarter: 2019Q1

REPORT INFORMATION
  Report Type: Report from Study
  Country: US (occurrence: US)
  Receive Date: 20190227
  Receipt Date: 20190227
  Transmission Date: 20190418
  Serious: Yes (Hospitalization)
  Sender: FDA-Public Use
  Company Number: US-BAYER-2019-034901

PATIENT
  Age: 62 Year
  Sex: Male

DRUGS (1)
  1. STIVARGA [Suspect]
     Active Substance: REGORAFENIB
     Indication: MALIGNANT NEOPLASM OF AURICULAR CARTILAGE
     Dosage: 160 MG DAILY FOR 21 DAYS WITH A LOW FAT BREAKFAST, WITHHOLD FOR 7 DAYS, THEN REPEAT
     Route: 048
     Dates: start: 20190121

REACTIONS (4)
  - Swelling face [Unknown]
  - Product use in unapproved indication [None]
  - Off label use [None]
  - Infection [Unknown]

NARRATIVE: CASE EVENT DATE: 20190121
